FAERS Safety Report 5961757-1 (Version None)
Quarter: 2008Q4

REPORT INFORMATION
  Report Type: 
  Country: None (occurrence: None)
  Receive Date: 20081121
  Receipt Date: 20081117
  Transmission Date: 20090506
  Serious: Yes (Other)
  Sender: FDA-Public Use
  Company Number: IT-BRISTOL-MYERS SQUIBB COMPANY-14410658

PATIENT
  Age: 38 Year
  Sex: Female

DRUGS (7)
  1. BLEOMYCIN SULFATE [Suspect]
     Indication: HODGKIN'S DISEASE
     Dosage: 1DF- 5 UNITS/M2 ON WEEKS 2,4,6,8,10 AND 12
     Route: 042
  2. ETOPOSIDE [Suspect]
     Indication: HODGKIN'S DISEASE
     Dosage: TWICE DAILY ON WEEKS 3,7 + 11
     Route: 042
  3. VINCRISTINE SULFATE [Suspect]
     Indication: HODGKIN'S DISEASE
     Dosage: MAXIMUM DOSE 2MG
     Route: 042
  4. DOXORUBICIN HCL [Suspect]
     Indication: HODGKIN'S DISEASE
     Dosage: ON WEEKS 1, 3,5, 7,9 + 11
     Route: 042
  5. VINBLASTINE SULFATE [Suspect]
     Indication: HODGKIN'S DISEASE
     Dosage: ON WEEKS 1, 3,5, 7,9 + 11
  6. CHLORMETHINE HCL [Suspect]
     Indication: HODGKIN'S DISEASE
     Dosage: ON WEEK 1, 5 AND 9
  7. PREDNISONE TAB [Concomitant]
     Dosage: EVERY OTHER DAY ON WEEKS 1-10+ TAPERED IN WEEKS 11+12
     Route: 048

REACTIONS (2)
  - NEUTROPENIA [None]
  - NON-HODGKIN'S LYMPHOMA [None]
